FAERS Safety Report 8866168 (Version 2)
Quarter: 2012Q4

REPORT INFORMATION
  Report Type: 
  Country: US (occurrence: US)
  Receive Date: 20121025
  Receipt Date: 20121031
  Transmission Date: 20130627
  Serious: No
  Sender: FDA-Public Use
  Company Number: US-TEVA-365742USA

PATIENT
  Age: 46 Year
  Sex: Female

DRUGS (1)
  1. FENTORA [Suspect]
     Indication: BREAKTHROUGH PAIN
     Route: 002
     Dates: end: 20121021

REACTIONS (4)
  - Drug dependence [Unknown]
  - Off label use [Unknown]
  - Discomfort [Not Recovered/Not Resolved]
  - Pain [Not Recovered/Not Resolved]
